FAERS Safety Report 15222328 (Version 1)
Quarter: 2018Q3

REPORT INFORMATION
  Report Type: Report from Study
  Country: US (occurrence: US)
  Receive Date: 20180731
  Receipt Date: 20180731
  Transmission Date: 20181010
  Serious: Yes (Other)
  Sender: FDA-Public Use
  Company Number: US-JNJFOC-20180738414

PATIENT
  Sex: Male

DRUGS (2)
  1. ACALABRUTINIB. [Concomitant]
     Active Substance: ACALABRUTINIB
  2. IMBRUVICA [Suspect]
     Active Substance: IBRUTINIB
     Indication: CHRONIC LYMPHOCYTIC LEUKAEMIA
     Route: 048
     Dates: start: 20170110

REACTIONS (1)
  - Gastrointestinal haemorrhage [Unknown]
